FAERS Safety Report 6184956-5 (Version None)
Quarter: 2009Q2

REPORT INFORMATION
  Report Type: 
  Country: None (occurrence: None)
  Receive Date: 20090511
  Receipt Date: 20090121
  Transmission Date: 20091009
  Serious: No
  Sender: FDA-Public Use
  Company Number: A0764525A

PATIENT
  Age: 42 Year
  Sex: Female

DRUGS (2)
  1. COREG CR [Suspect]
     Dosage: 80MG PER DAY
     Route: 048
     Dates: start: 20080701, end: 20081101
  2. UNKNOWN [Concomitant]

REACTIONS (3)
  - HORMONE LEVEL ABNORMAL [None]
  - MENSTRUAL DISORDER [None]
  - RASH [None]
